FAERS Safety Report 7630428-8 (Version None)
Quarter: 2011Q3

REPORT INFORMATION
  Report Type: 
  Country: None (occurrence: None)
  Receive Date: 20110722
  Receipt Date: 20110713
  Transmission Date: 20111222
  Serious: Yes (Hospitalization)
  Sender: FDA-Public Use
  Company Number: PL-VIIV HEALTHCARE LIMITED-B0717532A

PATIENT
  Sex: Male

DRUGS (8)
  1. BISOPROLOL [Concomitant]
     Dosage: 5MG PER DAY
  2. EFAVIRENZ [Suspect]
     Indication: HIV INFECTION
     Dosage: 600MG PER DAY
     Route: 048
     Dates: start: 20051018
  3. CAPTOPRIL [Concomitant]
     Dosage: 12.5MG AS REQUIRED
     Route: 060
  4. COMBIVIR [Suspect]
     Indication: HIV INFECTION
     Route: 048
     Dates: start: 20051018
  5. ASPIRIN [Concomitant]
     Dosage: 150MG PER DAY
  6. DETRALEX [Concomitant]
     Dosage: 1MG TWICE PER DAY
  7. FINASTERIDE [Concomitant]
     Dosage: 5MG PER DAY
  8. LOSARTAN POTASSIUM [Concomitant]
     Dosage: 50MG PER DAY

REACTIONS (1)
  - CALCULUS BLADDER [None]
